FAERS Safety Report 4459888-0 (Version None)
Quarter: 2004Q3

REPORT INFORMATION
  Report Type: 
  Country: None (occurrence: None)
  Receive Date: 20040923
  Receipt Date: 20040907
  Transmission Date: 20050211
  Serious: No
  Sender: FDA-Public Use
  Company Number: AVE_0029_2004

PATIENT
  Age: 11 Year
  Sex: Male

DRUGS (1)
  1. NICOTINE TRANSDERMAL SYSTEM [Suspect]
     Indication: SMOKING CESSATION THERAPY
     Dosage: 2 PATCH PER24HR TD
     Route: 062

REACTIONS (13)
  - ABDOMINAL PAIN UPPER [None]
  - ACCIDENTAL EXPOSURE [None]
  - ASTHENIA [None]
  - BLOOD PRESSURE DECREASED [None]
  - COLD SWEAT [None]
  - DRUG TOXICITY [None]
  - DYSSTASIA [None]
  - FALL [None]
  - FEELING ABNORMAL [None]
  - HEADACHE [None]
  - NAUSEA [None]
  - PALPITATIONS [None]
  - VOMITING [None]
